FAERS Safety Report 4614596-8 (Version None)
Quarter: 2005Q2

REPORT INFORMATION
  Report Type: 
  Country: None (occurrence: None)
  Receive Date: 20050307
  Receipt Date: 20041116
  Transmission Date: 20051028
  Serious: No
  Sender: FDA-Public Use
  Company Number: USA041184013

PATIENT
  Age: 67 Year
  Sex: Male

DRUGS (7)
  1. ALIMTA [Suspect]
     Indication: NON-SMALL CELL LUNG CANCER
     Dosage: 500 MG/M2
     Dates: start: 20040929
  2. VITAMIN B-12 [Concomitant]
  3. FOLIC ACID [Concomitant]
  4. DECADRON [Concomitant]
  5. CELEBREX [Concomitant]
  6. LUPRON [Concomitant]
  7. ANZEMET (DOLASETRON MESILATE) [Concomitant]

REACTIONS (1)
  - RASH PRURITIC [None]
